FAERS Safety Report 20264699 (Version 1)
Quarter: 2021Q4

REPORT INFORMATION
  Report Type: Spontaneous
  Country: US (occurrence: None)
  Receive Date: 20211230
  Receipt Date: 20211230
  Transmission Date: 20220303
  Serious: Yes (Hospitalization)
  Sender: FDA-Public Use
  Company Number: None

PATIENT
  Sex: Female

DRUGS (5)
  1. PROLIA [Suspect]
     Active Substance: DENOSUMAB
     Indication: Osteoporosis
     Dosage: OTHER FREQUENCY : EVERY 6 MONTHS;?
     Route: 058
     Dates: start: 20181220
  2. GAS-X CHW [Concomitant]
  3. GLUCOS/CHOND TAB [Concomitant]
  4. METANX CAP [Concomitant]
  5. TUMERIC CAP [Concomitant]

REACTIONS (1)
  - Rotator cuff repair [None]
